FAERS Safety Report 4307021-8 (Version None)
Quarter: 2004Q1

REPORT INFORMATION
  Report Type: 
  Country: None (occurrence: None)
  Receive Date: 20040227
  Receipt Date: 20010601
  Transmission Date: 20041129
  Serious: Yes (Hospitalization)
  Sender: FDA-Public Use
  Company Number: US-ROCHE-261551

PATIENT
  Age: 44 Year
  Sex: Female
  Weight: 99.8 kg

DRUGS (22)
  1. PEG-INTERFERON ALFA 2A (RO 25-8310) [Suspect]
     Route: 058
     Dates: start: 20010618, end: 20030520
  2. PEG-INTERFERON ALFA 2A (RO 25-8310) [Suspect]
     Route: 058
     Dates: end: 20040203
  3. PEG-INTERFERON ALFA 2A (RO 25-8310) [Suspect]
     Route: 058
     Dates: start: 20040216
  4. RIBAVIRIN [Suspect]
     Route: 048
     Dates: start: 19810615
  5. URSO [Concomitant]
     Route: 048
  6. CELEXA [Concomitant]
     Indication: DEPRESSION
     Route: 048
  7. HYDROCHLOROTHIAZIDE [Concomitant]
     Dosage: DOSING FREQUENCY REPORTED AS EVERY OTHER DAY.
     Route: 048
  8. PRILOSEC [Concomitant]
     Route: 048
  9. ATARAX [Concomitant]
     Dosage: TAKEN AT BED-TIME.
     Route: 048
  10. ATIVAN [Concomitant]
     Dates: start: 20010813
  11. TRAZODONE HCL [Concomitant]
     Dates: start: 20020605
  12. GLUCOTROL [Concomitant]
     Dosage: DOSE INCREASED FROM 2.5 MG QD TO 10 MG QD ON 21 MAY 2003.
     Dates: start: 20020711
  13. MULTI-VITAMIN [Concomitant]
     Indication: VITAMIN SUPPLEMENTATION
     Route: 048
  14. VITAMIN E [Concomitant]
     Indication: VITAMIN SUPPLEMENTATION
     Route: 048
     Dates: start: 20010630
  15. ACETAMINOPHEN [Concomitant]
     Dates: start: 20010702
  16. CELEBREX [Concomitant]
     Dates: start: 20030515
  17. NEURONTIN [Concomitant]
     Dates: start: 20030515
  18. RESTORIL [Concomitant]
     Indication: INSOMNIA
     Dosage: TAKEN AT BEDTIME OR AS NEEDED.
     Route: 048
     Dates: end: 20020605
  19. CALCIUM WITH VITAMIN D [Concomitant]
     Indication: VITAMIN SUPPLEMENTATION
     Route: 048
     Dates: start: 20010627, end: 20020409
  20. VITAMIN A,C, + E [Concomitant]
     Indication: VITAMIN SUPPLEMENTATION
     Dosage: VISION FORMULA (VIT A, C, E, ZINC). RE-STARTED AT ABOVE REGIMEN ON 07 JUL 2001.
     Route: 048
     Dates: start: 20010630
  21. ZINC SULFATE [Concomitant]
     Indication: VITAMIN SUPPLEMENTATION
     Dosage: VISION FORMULA (VIT A, C, E, ZINC). RE-STARTED AT ABOVE REGIMEN ON 07 JUL 2001.
     Route: 048
     Dates: start: 20010630
  22. AMBIEN [Concomitant]
     Dates: start: 20030818

REACTIONS (9)
  - ABDOMINAL PAIN LOWER [None]
  - CHILLS [None]
  - HAEMATOMA [None]
  - HEPATOMEGALY [None]
  - OVARIAN CYST [None]
  - POST PROCEDURAL HAEMORRHAGE [None]
  - PYREXIA [None]
  - SPLENOMEGALY [None]
  - WHITE BLOOD CELL COUNT DECREASED [None]
